FAERS Safety Report 8114913 (Version 47)
Quarter: 2018Q1

REPORT INFORMATION
  Report Type: Report from Study
  Country: CA (occurrence: CA)
  Receive Date: 20110831
  Receipt Date: 20180209
  Transmission Date: 20180509
  Serious: Yes (Hospitalization, Other)
  Sender: FDA-Public Use
  Company Number: PHHY2011CA75412

PATIENT
  Age: 36 Year
  Sex: Female
  Weight: 45.35 kg

DRUGS (12)
  1. SANDOSTATIN LAR DEPOT [Suspect]
     Active Substance: OCTREOTIDE ACETATE
     Dosage: 20 MG, QMO
     Route: 030
     Dates: start: 20131114
  2. SANDOSTATIN LAR DEPOT [Suspect]
     Active Substance: OCTREOTIDE ACETATE
     Dosage: 10 MG, QMO
     Route: 030
  3. TYLENOL [Concomitant]
     Active Substance: ACETAMINOPHEN
     Indication: PRODUCT USED FOR UNKNOWN INDICATION
     Dosage: UNK, PRN
     Route: 065
  4. SANDOSTATIN LAR DEPOT [Suspect]
     Active Substance: OCTREOTIDE ACETATE
     Dosage: 30 MG, QMO
     Route: 030
  5. TALWIN [Concomitant]
     Active Substance: PENTAZOCINE LACTATE
     Indication: PRODUCT USED FOR UNKNOWN INDICATION
     Dosage: UNK, PRN
     Route: 065
  6. IMURAN [Suspect]
     Active Substance: AZATHIOPRINE
     Indication: PRODUCT USED FOR UNKNOWN INDICATION
     Dosage: UNK
     Route: 065
     Dates: end: 20130412
  7. SANDOSTATIN LAR DEPOT [Suspect]
     Active Substance: OCTREOTIDE ACETATE
     Indication: CROHN^S DISEASE
     Dosage: 20 MG, QMO
     Route: 030
     Dates: start: 20060315
  8. SANDOSTATIN LAR DEPOT [Suspect]
     Active Substance: OCTREOTIDE ACETATE
     Dosage: 10 MG, QMO
     Route: 030
     Dates: start: 2011
  9. ALPRAZOLAM. [Concomitant]
     Active Substance: ALPRAZOLAM
     Indication: PRODUCT USED FOR UNKNOWN INDICATION
     Dosage: UNK, PRN
     Route: 065
  10. SANDOSTATIN LAR DEPOT [Suspect]
     Active Substance: OCTREOTIDE ACETATE
     Indication: GASTROINTESTINAL STOMA COMPLICATION
     Dosage: 30 MG, QMO
     Route: 030
     Dates: start: 20090604
  11. SANDOSTATIN LAR DEPOT [Suspect]
     Active Substance: OCTREOTIDE ACETATE
     Dosage: 10 MG, QMO
     Route: 030
     Dates: start: 20140304
  12. SANDOSTATIN LAR DEPOT [Suspect]
     Active Substance: OCTREOTIDE ACETATE
     Dosage: 20 MG, QMO
     Route: 030

REACTIONS (43)
  - Uterine leiomyoma [Unknown]
  - Ovarian cyst [Unknown]
  - Depressed mood [Unknown]
  - Influenza [Unknown]
  - Drug ineffective [Unknown]
  - Product use in unapproved indication [Unknown]
  - Dehydration [Unknown]
  - Urethral injury [Unknown]
  - Stomatitis [Unknown]
  - Malaise [Recovered/Resolved]
  - Blood potassium decreased [Unknown]
  - Heart rate decreased [Unknown]
  - Dry eye [Unknown]
  - Weight decreased [Not Recovered/Not Resolved]
  - Fall [Unknown]
  - Epistaxis [Unknown]
  - Intestinal haemorrhage [Unknown]
  - Impaired gastric emptying [Not Recovered/Not Resolved]
  - Serum ferritin increased [Unknown]
  - Endometriosis [Unknown]
  - Abdominal pain lower [Not Recovered/Not Resolved]
  - Blood pressure decreased [Unknown]
  - Dysuria [Recovered/Resolved]
  - Pyrexia [Unknown]
  - General physical health deterioration [Unknown]
  - Dysuria [Unknown]
  - Musculoskeletal pain [Recovering/Resolving]
  - Headache [Unknown]
  - Alopecia [Unknown]
  - Anaemia [Recovering/Resolving]
  - Malabsorption [Unknown]
  - Inflammation [Unknown]
  - Blood iron increased [Unknown]
  - Contusion [Unknown]
  - Blood creatinine increased [Unknown]
  - Fatigue [Not Recovered/Not Resolved]
  - Decreased appetite [Unknown]
  - Haemoglobin decreased [Unknown]
  - Weight increased [Unknown]
  - Energy increased [Unknown]
  - Muscle spasms [Unknown]
  - Renal impairment [Unknown]
  - Nausea [Unknown]

NARRATIVE: CASE EVENT DATE: 201103
